FAERS Safety Report 17303934 (Version 1)
Quarter: 2020Q1

REPORT INFORMATION
  Report Type: Spontaneous
  Country: US (occurrence: US)
  Receive Date: 20200122
  Receipt Date: 20200122
  Transmission Date: 20200409
  Serious: Yes (Other)
  Sender: FDA-Public Use
  Company Number: US-ANIPHARMA-2020-US-000893

PATIENT
  Age: 20 Month
  Sex: Female

DRUGS (3)
  1. CORTICOTROPIN (NON-SPECIFIC) [Suspect]
     Active Substance: CORTICOTROPIN
     Indication: INFANTILE SPASMS
     Dosage: 150 U/SQUARE-METER
  2. PREDNISONE. [Suspect]
     Active Substance: PREDNISONE
     Indication: INFANTILE SPASMS
     Dosage: 8 MG/KG/DAY
  3. VIGABATRIN. [Concomitant]
     Active Substance: VIGABATRIN
     Dosage: 150 MG/KG/DAY

REACTIONS (4)
  - Paraplegia [Unknown]
  - Cushingoid [Unknown]
  - Epidural lipomatosis [Unknown]
  - Weight increased [Unknown]
